FAERS Safety Report 5259905-4 (Version None)
Quarter: 2007Q1

REPORT INFORMATION
  Report Type: 
  Country: None (occurrence: None)
  Receive Date: 20070309
  Receipt Date: 20070226
  Transmission Date: 20070707
  Serious: Yes (Hospitalization)
  Sender: FDA-Public Use
  Company Number: NL-ROCHE-484299

PATIENT
  Age: 58 Year
  Sex: Male

DRUGS (4)
  1. CAPECITABINE [Suspect]
     Dosage: GIVEN ON DAYS 1 TO 14 EVERY 3 WEEKS.
     Route: 048
     Dates: start: 20051205
  2. BEVACIZUMAB [Suspect]
     Dosage: GIVEN ON DAY 1 EVERY 3 WEEKS.
     Route: 042
     Dates: start: 20051205
  3. OXALIPLATIN [Suspect]
     Dosage: GIVEN ON DAY 1 EVERY 3 WEEKS.
     Route: 042
     Dates: start: 20051205
  4. PYRIDOXINE HCL [Concomitant]
     Route: 048

REACTIONS (1)
  - EPILEPSY [None]
